FAERS Safety Report 9387742 (Version 1)
Quarter: 2013Q3

REPORT INFORMATION
  Report Type: Spontaneous
  Country: TN (occurrence: TN)
  Receive Date: 20130708
  Receipt Date: 20130708
  Transmission Date: 20140515
  Serious: Yes (Death, Other)
  Sender: FDA-Public Use
  Company Number: TN-ROXANE LABORATORIES, INC.-2013-RO-01103RO

PATIENT
  Age: 55 Year
  Sex: Female

DRUGS (8)
  1. CYCLOPHOSPHAMIDE TABLETS USP [Suspect]
     Indication: MYCOSIS FUNGOIDES
     Dosage: 300 MG
  2. CYCLOPHOSPHAMIDE TABLETS USP [Suspect]
     Indication: T-CELL LYMPHOMA
  3. PREDNISONE [Suspect]
     Indication: MYCOSIS FUNGOIDES
     Dosage: 65 MG
  4. PREDNISONE [Suspect]
     Indication: T-CELL LYMPHOMA
     Dosage: 65 MG
     Route: 048
  5. PREDNISONE [Suspect]
  6. METHOTREXATE [Suspect]
     Indication: MYCOSIS FUNGOIDES
     Route: 048
  7. DOXORUBICIN [Suspect]
     Indication: T-CELL LYMPHOMA
  8. VINCRISTINE [Suspect]
     Indication: T-CELL LYMPHOMA

REACTIONS (4)
  - T-cell lymphoma [Fatal]
  - Pigmentation disorder [Unknown]
  - Hepatotoxicity [Unknown]
  - Drug ineffective [Unknown]
